FAERS Safety Report 6189116-X (Version None)
Quarter: 2009Q2

REPORT INFORMATION
  Report Type: 
  Country: None (occurrence: None)
  Receive Date: 20090513
  Receipt Date: 20090121
  Transmission Date: 20091009
  Serious: No
  Sender: FDA-Public Use
  Company Number: A0764539A

PATIENT
  Age: 49 Year
  Sex: Female

DRUGS (6)
  1. TREXIMET [Suspect]
     Indication: MIGRAINE
     Dosage: 1TAB AS REQUIRED
     Route: 048
     Dates: start: 20080101, end: 20080101
  2. IMITREX INJECTION [Concomitant]
  3. INDERAL [Concomitant]
  4. LASIX [Concomitant]
  5. CARAFATE [Concomitant]
  6. PREVACID [Concomitant]

REACTIONS (1)
  - DRUG INEFFECTIVE [None]
